FAERS Safety Report 8187802-3 (Version None)
Quarter: 2012Q1

REPORT INFORMATION
  Report Type: 
  Country: None (occurrence: None)
  Receive Date: 20120306
  Receipt Date: 20111027
  Transmission Date: 20120608
  Serious: Yes (Other)
  Sender: FDA-Public Use
  Company Number: US-ROCHE-1008233

PATIENT
  Sex: Female

DRUGS (6)
  1. VENTOLIN [Concomitant]
     Indication: ASTHMA
  2. GLYBURIDE [Concomitant]
     Indication: GESTATIONAL DIABETES
     Route: 048
  3. DULCOLAX [Concomitant]
     Indication: HAEMORRHOIDS
     Route: 054
  4. OMALIZUMAB [Suspect]
     Indication: ASTHMA
     Dates: start: 20100601
  5. VITAMIN AND MINERAL PRENATAL SUPPLEMENT W/ FOLIC ACID CAP [Concomitant]
     Indication: PREGNANCY
     Route: 048
  6. THEOPHYLLINE [Concomitant]
     Indication: ASTHMA

REACTIONS (1)
  - ANAEMIA [None]
